FAERS Safety Report 7366675-2 (Version None)
Quarter: 2011Q1

REPORT INFORMATION
  Report Type: 
  Country: None (occurrence: None)
  Receive Date: 20110225
  Receipt Date: 20101026
  Transmission Date: 20110831
  Serious: No
  Sender: FDA-Public Use
  Company Number: 317276

PATIENT
  Age: 50 Year
  Sex: Female

DRUGS (4)
  1. METFORMIN HCL [Concomitant]
  2. GLIPIZIDE [Concomitant]
  3. VICTOZA [Suspect]
     Indication: TYPE 2 DIABETES MELLITUS
     Dosage: 1.2 MG, QD, SUBCUTANEOUS
     Route: 058
     Dates: start: 20100101
  4. ACTOSE (PIOGLITAZONE HYDROCHLORIDE) [Concomitant]

REACTIONS (1)
  - ABDOMINAL PAIN UPPER [None]
